FAERS Safety Report 8920032 (Version 1)
Quarter: 2012Q4

REPORT INFORMATION
  Report Type: 
  Country: US (occurrence: US)
  Receive Date: 20121121
  Receipt Date: 20121121
  Transmission Date: 20130627
  Serious: No
  Sender: FDA-Public Use
  Company Number: US-BRISTOL-MYERS SQUIBB COMPANY-16363954

PATIENT

DRUGS (3)
  1. AVALIDE [Suspect]
  2. PRAVACHOL [Suspect]
  3. PLAVIX [Suspect]

REACTIONS (1)
  - Circumstance or information capable of leading to medication error [Unknown]
